FAERS Safety Report 11243048 (Version 3)
Quarter: 2015Q3

REPORT INFORMATION
  Report Type: Spontaneous
  Country: EG (occurrence: EG)
  Receive Date: 20150707
  Receipt Date: 20150813
  Transmission Date: 20151125
  Serious: Yes (Hospitalization)
  Sender: FDA-Public Use
  Company Number: EG-NOVOPROD-454750

PATIENT
  Age: 45 Year
  Sex: Female
  Weight: 125 kg

DRUGS (6)
  1. MYODURA [Concomitant]
     Indication: HYPERTENSION
     Dosage: 1 TAB IN THE PM (AS REPORTED BY THE PATIENT),STARTED 4 YEARS AGO
  2. CONCOR 5 PLUS [Concomitant]
     Indication: HYPERTENSION
     Dosage: 1 TAB, SINGLE (1 TAB IN THE MORNING,STARTED 4 YEARS AGO)
     Route: 048
  3. ELTROXIN [Concomitant]
     Active Substance: LEVOTHYROXINE
     Indication: HYPOTHYROIDISM
     Dosage: 1.5 TAB, SINGLE (STARTED 10 YEARS AGO,DOSE 1.5 TAB IN MORNING)
     Route: 048
  4. MIXTARD 30 HM PENFILL [Suspect]
     Active Substance: INSULIN HUMAN
     Dosage: 90 IU, QD (30 IU AT NIGHT AS FIXED DOSE + 60 IU IN THE MORNING)
     Route: 058
  5. MIXTARD 30 HM PENFILL [Suspect]
     Active Substance: INSULIN HUMAN
     Indication: TYPE 2 DIABETES MELLITUS
     Dosage: 70 IU, QD (30 IU AT NIGHT AS FIXED DOSE + 40 IU IN THE MORNING)
     Route: 058
  6. MIXTARD 30 HM PENFILL [Suspect]
     Active Substance: INSULIN HUMAN
     Dosage: 110 IU, QD (30 IU AT NIGHT AS FIXED DOSE + 80 IU IN THE MORNING)
     Route: 058
     Dates: end: 20150502

REACTIONS (2)
  - Hyperglycaemia [Recovered/Resolved]
  - Angina pectoris [Recovered/Resolved]

NARRATIVE: CASE EVENT DATE: 20150502
